FAERS Safety Report 10902208 (Version 3)
Quarter: 2015Q4

REPORT INFORMATION
  Report Type: Report from Study
  Country: BR (occurrence: BR)
  Receive Date: 20150310
  Receipt Date: 20151008
  Transmission Date: 20160304
  Serious: Yes (Hospitalization, Other)
  Sender: FDA-Public Use
  Company Number: PHHY2015BR028016

PATIENT
  Sex: Male
  Weight: 82 kg

DRUGS (3)
  1. SANDOSTATIN LAR DEPOT [Suspect]
     Active Substance: OCTREOTIDE ACETATE
     Indication: ACROMEGALY
     Dosage: 1 DF (AMPOULE), EVERY 28 DAYS
     Route: 065
     Dates: start: 2004
  2. OMEPRAZOLE. [Concomitant]
     Active Substance: OMEPRAZOLE
     Indication: PAIN PROPHYLAXIS
     Dosage: 1 DF, QD
     Route: 048
  3. BACTRIM [Concomitant]
     Active Substance: SULFAMETHOXAZOLE\TRIMETHOPRIM
     Indication: INFECTION PROPHYLAXIS
     Dosage: 400 MG (1 TABLET), QD
     Route: 048

REACTIONS (7)
  - Immune system disorder [Recovering/Resolving]
  - Gastrointestinal disorder [Recovered/Resolved]
  - Plasma cell myeloma [Recovering/Resolving]
  - Prostatitis [Recovering/Resolving]
  - Infection [Recovered/Resolved]
  - Faeces soft [Recovered/Resolved]
  - Pyrexia [Recovered/Resolved]

NARRATIVE: CASE EVENT DATE: 2010
